FAERS Safety Report 12801720 (Version 1)
Quarter: 2016Q4

REPORT INFORMATION
  Report Type: Spontaneous
  Country: US (occurrence: US)
  Receive Date: 20161003
  Receipt Date: 20161003
  Transmission Date: 20170207
  Serious: No
  Sender: FDA-Public Use
  Company Number: US-PFIZER INC-2016459955

PATIENT

DRUGS (2)
  1. DEXTROSE. [Concomitant]
     Active Substance: DEXTROSE
  2. MARCAINE [Suspect]
     Active Substance: BUPIVACAINE HYDROCHLORIDE
     Indication: SPINAL ANAESTHESIA
     Dosage: 2 ML, IN DEXTROSE, UNK

REACTIONS (1)
  - Drug ineffective [Unknown]
